FAERS Safety Report 14713986 (Version 6)
Quarter: 2020Q1

REPORT INFORMATION
  Report Type: Report from Study
  Country: US (occurrence: US)
  Receive Date: 20180404
  Receipt Date: 20200210
  Transmission Date: 20200409
  Serious: Yes (Other)
  Sender: FDA-Public Use
  Company Number: PHEH2018US011577

PATIENT
  Sex: Female

DRUGS (2)
  1. COSENTYX [Suspect]
     Active Substance: SECUKINUMAB
     Indication: PSORIASIS
     Dosage: 300 MG, QMO (Q4W)
     Route: 058
     Dates: start: 20160126
  2. COSENTYX [Suspect]
     Active Substance: SECUKINUMAB
     Indication: PSORIATIC ARTHROPATHY
     Dosage: 300 MG, QMO
     Route: 058
     Dates: start: 201601

REACTIONS (11)
  - Urinary tract infection [Unknown]
  - Muscle spasms [Recovering/Resolving]
  - Blood urine present [Not Recovered/Not Resolved]
  - Muscle rupture [Recovering/Resolving]
  - Rash [Unknown]
  - Haematuria [Unknown]
  - Drug intolerance [Unknown]
  - Nephrolithiasis [Recovered/Resolved]
  - Psoriatic arthropathy [Recovered/Resolved]
  - Muscle fatigue [Recovering/Resolving]
  - Psoriasis [Recovered/Resolved]
